FAERS Safety Report 23595060 (Version 1)
Quarter: 2024Q1

REPORT INFORMATION
  Report Type: Spontaneous
  Country: IT (occurrence: IT)
  Receive Date: 20240305
  Receipt Date: 20240305
  Transmission Date: 20240409
  Serious: Yes (Other)
  Sender: FDA-Public Use
  Company Number: IT-SUN PHARMACEUTICAL INDUSTRIES LTD-2024RR-434533

PATIENT
  Age: 70 Year
  Sex: Male

DRUGS (5)
  1. OXALIPLATIN [Suspect]
     Active Substance: OXALIPLATIN
     Indication: Colon cancer
     Dosage: 120 MILLIGRAM
     Route: 065
     Dates: start: 20230516, end: 20230530
  2. FLUOROURACIL [Suspect]
     Active Substance: FLUOROURACIL
     Indication: Colon cancer
     Dosage: 3500 MILLIGRAM
     Route: 065
     Dates: start: 20230516, end: 20230530
  3. FLUOROURACIL [Suspect]
     Active Substance: FLUOROURACIL
     Dosage: 600 MILLIGRAM
     Route: 065
     Dates: start: 20230516, end: 20230530
  4. BEVACIZUMAB [Suspect]
     Active Substance: BEVACIZUMAB
     Indication: Colon cancer
     Dosage: 350 MILLIGRAM
     Route: 065
     Dates: start: 20230516, end: 20230530
  5. LEVOLEUCOVORIN [Concomitant]
     Active Substance: LEVOLEUCOVORIN
     Indication: Product used for unknown indication
     Dosage: UNK
     Route: 065

REACTIONS (3)
  - Azotaemia [Recovering/Resolving]
  - Neutropenia [Recovering/Resolving]
  - Leukopenia [Recovering/Resolving]

NARRATIVE: CASE EVENT DATE: 20230523
